FAERS Safety Report 5228519-4 (Version None)
Quarter: 2007Q1

REPORT INFORMATION
  Report Type: 
  Country: None (occurrence: None)
  Receive Date: 20070205
  Receipt Date: 20070124
  Transmission Date: 20070707
  Serious: Yes (Life-Threatening, Other)
  Sender: FDA-Public Use
  Company Number: US-AVENTIS-200710580US

PATIENT
  Age: 50 Year
  Sex: Male

DRUGS (2)
  1. RILUZOLE [Suspect]
  2. ZOLPIDEM TARTRATE [Concomitant]
     Dosage: DOSE: UNK

REACTIONS (13)
  - ALANINE AMINOTRANSFERASE INCREASED [None]
  - ASPARTATE AMINOTRANSFERASE INCREASED [None]
  - ATRIAL FIBRILLATION [None]
  - BLOOD ALKALINE PHOSPHATASE INCREASED [None]
  - HYPERSENSITIVITY [None]
  - LUNG INFILTRATION [None]
  - LYMPHADENOPATHY [None]
  - MARROW HYPERPLASIA [None]
  - MYALGIA [None]
  - NAUSEA [None]
  - PERICARDITIS CONSTRICTIVE [None]
  - PYREXIA [None]
  - RASH PRURITIC [None]
